FAERS Safety Report 7458981-8 (Version None)
Quarter: 2011Q2

REPORT INFORMATION
  Report Type: 
  Country: None (occurrence: None)
  Receive Date: 20110504
  Receipt Date: 20110421
  Transmission Date: 20111010
  Serious: Yes (Hospitalization, Other)
  Sender: FDA-Public Use
  Company Number: US-CELGENEUS-163-21880-11042966

PATIENT
  Sex: Female

DRUGS (24)
  1. REVLIMID [Suspect]
     Route: 048
     Dates: start: 20081201
  2. REVLIMID [Suspect]
     Dosage: 25 MILLIGRAM
     Route: 048
     Dates: start: 20100617
  3. ACYCLOVIR [Concomitant]
     Dosage: 400 MILLIGRAM
     Route: 048
  4. AMBIEN [Concomitant]
     Dosage: 1-2
     Route: 048
  5. BACLOFEN [Concomitant]
     Indication: HICCUPS
     Dosage: 10 MILLIGRAM
     Route: 048
  6. COMPAZINE [Concomitant]
     Dosage: 10 MILLIGRAM
     Route: 065
  7. PRILOSEC [Concomitant]
     Dosage: 20 MILLIGRAM
     Route: 065
  8. ACETAMINOPHEN [Concomitant]
     Dosage: 1-2
     Route: 048
  9. ASPIRIN [Concomitant]
     Dosage: 81 MILLIGRAM
     Route: 065
  10. LYRICA [Concomitant]
     Dosage: 100 MILLIGRAM
     Route: 048
  11. MORPHINE [Concomitant]
     Dosage: 15 MILLIGRAM
     Route: 065
  12. DEXAMETHASONE [Concomitant]
     Indication: MULTIPLE MYELOMA
     Dosage: ORAL OR IV
     Route: 065
     Dates: start: 20110406
  13. MIRALAX [Concomitant]
     Dosage: 17 GRAM
     Route: 065
  14. ONDANSETRON [Concomitant]
     Dosage: 8 MILLIGRAM
     Route: 065
  15. REVLIMID [Suspect]
     Dosage: 25 MILLIGRAM
     Route: 048
     Dates: start: 20091230, end: 20100429
  16. MAGIC MOUTH WASH [Concomitant]
     Dosage: SWISH AND SWALLOW
     Route: 048
  17. LIDOCAINE [Concomitant]
     Dosage: 1
     Route: 061
  18. SENNA [Concomitant]
     Dosage: 1-4
     Route: 048
  19. REVLIMID [Suspect]
     Indication: MULTIPLE MYELOMA
     Dosage: 15 MILLIGRAM
     Route: 048
     Dates: start: 20110406
  20. LEVOTHYROXINE SODIUM [Concomitant]
     Dosage: 1
     Route: 048
  21. MS CONTIN [Concomitant]
     Dosage: 60 MILLIGRAM
     Route: 065
  22. VELCADE [Concomitant]
     Indication: MULTIPLE MYELOMA
     Dosage: 1.3 MILLIGRAM/SQ. METER
     Route: 051
     Dates: start: 20110406
  23. CELEXA [Concomitant]
     Dosage: 10 MILLIGRAM
     Route: 065
  24. ALLEGRA [Concomitant]
     Dosage: 180/240MG
     Route: 048

REACTIONS (8)
  - HYPERCALCAEMIA [None]
  - FATIGUE [None]
  - STEM CELL TRANSPLANT [None]
  - HERPES ZOSTER [None]
  - PANCYTOPENIA [None]
  - TREMOR [None]
  - PYREXIA [None]
  - NERVOUSNESS [None]
